FAERS Safety Report 9791753 (Version 5)
Quarter: 2014Q3

REPORT INFORMATION
  Report Type: Report from Study
  Country: EG (occurrence: EG)
  Receive Date: 20140102
  Receipt Date: 20140728
  Transmission Date: 20150326
  Serious: Yes (Hospitalization, Other)
  Sender: FDA-Public Use
  Company Number: EG-ROCHE-1324655

PATIENT
  Age: 55 Year
  Sex: Female

DRUGS (7)
  1. COPEGUS [Suspect]
     Active Substance: RIBAVIRIN
     Indication: HEPATITIS C
     Dosage: 2 TAB
     Route: 048
     Dates: start: 20131117, end: 2014
  2. GASTRO-STOP [Concomitant]
     Active Substance: LOPERAMIDE
     Dosage: 1 DAILY
     Route: 065
  3. PEGASYS [Suspect]
     Active Substance: PEGINTERFERON ALFA-2A
     Indication: HEPATITIS C
     Route: 058
     Dates: start: 20130901, end: 2014
  4. DAFLON [Concomitant]
     Active Substance: DIOSMIN\HESPERIDIN
     Dosage: ONGOING
     Route: 065
  5. COPEGUS [Suspect]
     Active Substance: RIBAVIRIN
     Dosage: 1 TAB
     Route: 048
     Dates: start: 20131117
  6. RIBAVIRIN. [Suspect]
     Active Substance: RIBAVIRIN
     Indication: HEPATITIS C
     Dosage: STOPPED
     Route: 048
     Dates: start: 20130901
  7. FOLIC ACID. [Concomitant]
     Active Substance: FOLIC ACID
     Route: 065

REACTIONS (17)
  - Dry eye [Not Recovered/Not Resolved]
  - Dizziness [Not Recovered/Not Resolved]
  - Peripheral swelling [Recovered/Resolved]
  - Erythema of eyelid [Not Recovered/Not Resolved]
  - Vomiting [Not Recovered/Not Resolved]
  - Eyelid oedema [Not Recovered/Not Resolved]
  - Anaemia [Not Recovered/Not Resolved]
  - Dry eye [Not Recovered/Not Resolved]
  - Eye inflammation [Not Recovered/Not Resolved]
  - Inflammation [Recovered/Resolved]
  - Deep vein thrombosis [Unknown]
  - Chest pain [Not Recovered/Not Resolved]
  - White blood cell count decreased [Not Recovered/Not Resolved]
  - Alopecia [Not Recovered/Not Resolved]
  - Tooth loss [Not Recovered/Not Resolved]
  - Eye pain [Not Recovered/Not Resolved]
  - Syncope [Not Recovered/Not Resolved]

NARRATIVE: CASE EVENT DATE: 20130901
